FAERS Safety Report 20860905 (Version 1)
Quarter: 2022Q2

REPORT INFORMATION
  Report Type: Spontaneous
  Country: US (occurrence: None)
  Receive Date: 20220522
  Receipt Date: 20220522
  Transmission Date: 20220720
  Serious: No
  Sender: FDA-Public Use
  Company Number: None

PATIENT
  Age: 71 Year
  Sex: Male
  Weight: 94.5 kg

DRUGS (1)
  1. EVUSHELD [Suspect]
     Active Substance: CILGAVIMAB\TIXAGEVIMAB
     Indication: COVID-19 prophylaxis
     Dosage: OTHER QUANTITY : 2 INJECTION(S);?OTHER FREQUENCY : SINGLE APPLICATION;?
     Route: 030
     Dates: start: 20220506, end: 20220506

REACTIONS (1)
  - Blood urea increased [None]

NARRATIVE: CASE EVENT DATE: 20220518
